FAERS Safety Report 9264893 (Version 2)
Quarter: 2013Q2

REPORT INFORMATION
  Report Type: Report from Study
  Country: MX (occurrence: MX)
  Receive Date: 20130501
  Receipt Date: 20130510
  Transmission Date: 20140414
  Serious: Yes (Hospitalization)
  Sender: FDA-Public Use
  Company Number: PHHY2013MX042761

PATIENT
  Age: 74 Year
  Sex: Female

DRUGS (11)
  1. EXELON PATCH [Suspect]
     Indication: VASCULAR DEMENTIA
     Dosage: 9.5 MG / 24 HOURS
     Route: 062
     Dates: start: 201209, end: 201301
  2. EXELON PATCH [Suspect]
     Indication: DEMENTIA ALZHEIMER^S TYPE
     Dosage: 9.5 MG / 24 HOURS
     Route: 062
     Dates: start: 201301
  3. TECTA [Concomitant]
     Indication: GASTRIC DISORDER
     Dosage: 1 UKN, QD
  4. TIAMINAL [Concomitant]
     Indication: NERVOUS SYSTEM DISORDER
     Dosage: 1 UKN, QD
     Dates: start: 201301
  5. NUCLEO CMP FORTE [Concomitant]
     Indication: NERVOUS SYSTEM DISORDER
     Dosage: 1 UKN, QD
     Dates: start: 201301
  6. ESPAVEN ENZIMATICO [Concomitant]
     Indication: GASTRIC DISORDER
     Dosage: 3 UKN, QD
  7. AVALIDE [Concomitant]
     Indication: HYPERTENSION
     Dosage: 0.5 UKN, QD
     Dates: start: 201210
  8. RIOPAN [Concomitant]
     Dosage: 2 SPOONS IN EVERY FOOD
     Dates: start: 2012
  9. EDICSA [Concomitant]
     Indication: DEMENTIA
     Dosage: 20 MG, UNK
     Dates: start: 201205
  10. AVAPRO [Concomitant]
     Indication: HYPERTENSION
     Dosage: 1 DF, DAILY
     Dates: start: 2010
  11. RAMIPRIL [Concomitant]
     Indication: HYPERTENSION
     Dosage: UNK UKN, UNK
     Dates: start: 2011

REACTIONS (5)
  - Haematemesis [Recovered/Resolved]
  - Blood pressure increased [Unknown]
  - Application site pruritus [Not Recovered/Not Resolved]
  - Application site erythema [Not Recovered/Not Resolved]
  - Application site perspiration [Not Recovered/Not Resolved]
